FAERS Safety Report 5638795-1 (Version None)
Quarter: 2008Q1

REPORT INFORMATION
  Report Type: 
  Country: None (occurrence: None)
  Receive Date: 20080226
  Receipt Date: 20080215
  Transmission Date: 20080703
  Serious: Yes (Hospitalization)
  Sender: FDA-Public Use
  Company Number: FR-JNJFOC-20080105872

PATIENT
  Sex: Female

DRUGS (13)
  1. ZALDIAR [Suspect]
     Indication: PAIN
     Route: 048
     Dates: start: 20070802, end: 20070825
  2. BRISTOPEN [Suspect]
     Indication: SUPERINFECTION
     Route: 048
  3. HYTACAND [Suspect]
     Indication: HYPERTENSION
     Route: 048
  4. ARICEPT [Suspect]
     Indication: DEMENTIA ALZHEIMER'S TYPE
     Route: 048
  5. LOVENOX [Suspect]
     Indication: PROPHYLAXIS
     Route: 065
  6. ORBENINE [Concomitant]
     Indication: SUPERINFECTION
     Route: 065
  7. ASPEGIC 1000 [Concomitant]
     Indication: DRUG USE FOR UNKNOWN INDICATION
     Route: 065
  8. LEVOTHYROX [Concomitant]
     Indication: DRUG USE FOR UNKNOWN INDICATION
     Route: 048
  9. ATHYMIL [Concomitant]
     Indication: DRUG USE FOR UNKNOWN INDICATION
     Route: 048
  10. NOLVADEX [Concomitant]
     Indication: DRUG USE FOR UNKNOWN INDICATION
     Route: 065
  11. XYZAL [Concomitant]
     Indication: DRUG USE FOR UNKNOWN INDICATION
     Route: 065
  12. ATACAND [Concomitant]
     Indication: DRUG USE FOR UNKNOWN INDICATION
     Route: 065
  13. PYOSTACINE [Concomitant]
     Indication: DRUG USE FOR UNKNOWN INDICATION
     Route: 065

REACTIONS (1)
  - NEPHRITIS [None]
